FAERS Safety Report 4911867-2 (Version None)
Quarter: 2006Q1

REPORT INFORMATION
  Report Type: 
  Country: None (occurrence: None)
  Receive Date: 20060215
  Receipt Date: 20060202
  Transmission Date: 20060701
  Serious: Yes (Other)
  Sender: FDA-Public Use
  Company Number: NL-JNJFOC-20060105406

PATIENT
  Sex: Male

DRUGS (11)
  1. REMINYL [Suspect]
     Route: 065
  2. REMINYL [Suspect]
     Route: 065
  3. REMINYL [Suspect]
     Indication: DRUG USE FOR UNKNOWN INDICATION
     Route: 065
  4. ASCAL [Concomitant]
  5. CLOMIPRAMINE HCL [Concomitant]
  6. PENTAZOL [Concomitant]
  7. XALATAN [Concomitant]
  8. PROSCAR [Concomitant]
  9. FUROSEMIDE [Concomitant]
  10. TIMOLOL MALEATE [Concomitant]
  11. OMNIC [Concomitant]

REACTIONS (2)
  - ACCIDENTAL OVERDOSE [None]
  - VENTRICULAR EXTRASYSTOLES [None]
